FAERS Safety Report 20155889 (Version 1)
Quarter: 2021Q4

REPORT INFORMATION
  Report Type: Spontaneous
  Country: FR (occurrence: FR)
  Receive Date: 20211207
  Receipt Date: 20211207
  Transmission Date: 20220303
  Serious: Yes (Other)
  Sender: FDA-Public Use
  Company Number: FR-BEH-2021138607

PATIENT
  Sex: Male

DRUGS (1)
  1. PROTHROMBIN COMPLEX CONCENTRATE NOS [Suspect]
     Active Substance: COAGULATION FACTOR IX HUMAN\COAGULATION FACTOR VII HUMAN\COAGULATION FACTOR X HUMAN\PROTHROMBIN
     Route: 065

REACTIONS (4)
  - Unevaluable event [Unknown]
  - Incorrect dose administered [Unknown]
  - Product dosage form confusion [Unknown]
  - Wrong dose [Unknown]
